FAERS Safety Report 21254656 (Version 3)
Quarter: 2022Q3

REPORT INFORMATION
  Report Type: Spontaneous
  Country: US (occurrence: US)
  Receive Date: 20220825
  Receipt Date: 20220923
  Transmission Date: 20221027
  Serious: Yes (Other)
  Sender: FDA-Public Use
  Company Number: US-PFIZER INC-202201087023

PATIENT
  Age: 72 Year
  Sex: Female
  Weight: 49.887 kg

DRUGS (2)
  1. PAXLOVID [Suspect]
     Active Substance: NIRMATRELVIR\RITONAVIR
     Indication: COVID-19 treatment
     Dosage: 3 DF (300 MG NIRMATRELVIR + 100 MG RITONAVIR/TAKE 3 FULL DOSE/ONLY MORNING DOSE ON 4TH DAY)
     Dates: start: 20220820, end: 20220823
  2. AZITHROMYCIN [Concomitant]
     Active Substance: AZITHROMYCIN
     Dosage: 250 MG (SHE TOOK IT LAST YESTERDAY MORNING AND STARTED ON THURSDAY)
     Dates: end: 20220822

REACTIONS (7)
  - Loss of consciousness [Recovered/Resolved]
  - Disease recurrence [Recovered/Resolved]
  - Joint injury [Unknown]
  - Contusion [Recovered/Resolved]
  - Faeces pale [Recovered/Resolved]
  - Diarrhoea [Recovered/Resolved]
  - Frequent bowel movements [Unknown]
